FAERS Safety Report 26083182 (Version 2)
Quarter: 2025Q4

REPORT INFORMATION
  Report Type: Spontaneous
  Country: JP (occurrence: JP)
  Receive Date: 20251124
  Receipt Date: 20251211
  Transmission Date: 20260118
  Serious: Yes (Hospitalization)
  Sender: FERRING
  Company Number: JP-FERRINGPH-2025FE06916

PATIENT

DRUGS (1)
  1. NOCDURNA [Suspect]
     Active Substance: DESMOPRESSIN ACETATE
     Indication: Product used for unknown indication
     Dosage: 25, 50 UG DAILY
     Route: 048

REACTIONS (4)
  - Fracture [Unknown]
  - Hyponatraemia [Unknown]
  - Underdose [Recovered/Resolved]
  - Product use issue [Recovered/Resolved]
